FAERS Safety Report 8258815-8 (Version None)
Quarter: 2012Q2

REPORT INFORMATION
  Report Type: 
  Country: None (occurrence: None)
  Receive Date: 20120403
  Receipt Date: 20120403
  Transmission Date: 20120825
  Serious: Yes (Hospitalization)
  Sender: FDA-Public Use
  Company Number: None

PATIENT
  Age: 63 Year
  Sex: Male
  Weight: 68.5 kg

DRUGS (1)
  1. WARFARIN SODIUM [Suspect]
     Indication: ATRIAL FIBRILLATION
     Dosage: 10 MG EVERY DAY PO
     Route: 048
     Dates: start: 20120203, end: 20120312

REACTIONS (7)
  - ALCOHOL USE [None]
  - RIB FRACTURE [None]
  - ANAEMIA [None]
  - INTERNATIONAL NORMALISED RATIO INCREASED [None]
  - FAECES DISCOLOURED [None]
  - FEELING ABNORMAL [None]
  - FALL [None]
